FAERS Safety Report 9034383 (Version 1)
Quarter: 2013Q1

REPORT INFORMATION
  Report Type: Spontaneous
  Country: IT (occurrence: IT)
  Receive Date: 20130128
  Receipt Date: 20130128
  Transmission Date: 20140127
  Serious: Yes (Other)
  Sender: FDA-Public Use
  Company Number: IT-SANOFI-AVENTIS-2013SA004781

PATIENT
  Age: 84 Year
  Sex: Female

DRUGS (9)
  1. CLEXANE [Suspect]
     Indication: THROMBOSIS PROPHYLAXIS
     Route: 058
     Dates: start: 20121121
  2. SIMVASTATIN [Concomitant]
  3. PANTOPRAZOLE [Concomitant]
  4. ORAMORPH [Concomitant]
  5. FERROGRAD [Concomitant]
  6. CYANOCOBALAMIN [Concomitant]
  7. MYCOSTATIN [Concomitant]
  8. LEVOPRAID [Concomitant]
  9. FLUTICASONE PROPIONATE/SALMETEROL XINAFOATE [Concomitant]

REACTIONS (1)
  - Renal failure acute [Recovering/Resolving]
